APPROVED DRUG PRODUCT: PYRAZINAMIDE
Active Ingredient: PYRAZINAMIDE
Strength: 500MG
Dosage Form/Route: TABLET;ORAL
Application: A212541 | Product #001 | TE Code: AB
Applicant: MACLEODS PHARMACEUTICALS LTD
Approved: Jul 27, 2020 | RLD: No | RS: No | Type: RX